FAERS Safety Report 16015769 (Version 2)
Quarter: 2019Q1

REPORT INFORMATION
  Report Type: Spontaneous
  Country: CN (occurrence: CN)
  Receive Date: 20190228
  Receipt Date: 20190301
  Transmission Date: 20190418
  Serious: Yes (Hospitalization, Other)
  Sender: FDA-Public Use
  Company Number: CN-ROCHE-2268921

PATIENT
  Sex: Male
  Weight: 83.5 kg

DRUGS (30)
  1. DOCETAXEL. [Concomitant]
     Active Substance: DOCETAXEL
     Route: 041
     Dates: start: 20180621
  2. BEVACIZUMAB. [Suspect]
     Active Substance: BEVACIZUMAB
     Dosage: 15 ML/KG
     Route: 042
     Dates: start: 20180807
  3. PEMETREXED. [Concomitant]
     Active Substance: PEMETREXED
     Indication: LUNG ADENOCARCINOMA
     Route: 065
     Dates: start: 20180303
  4. DOCETAXEL. [Concomitant]
     Active Substance: DOCETAXEL
     Route: 041
     Dates: start: 20180715
  5. DOCETAXEL. [Concomitant]
     Active Substance: DOCETAXEL
     Route: 041
     Dates: start: 20180829, end: 2018
  6. GIMERACIL/OTERACIL POTASSIUM [Concomitant]
     Indication: LUNG ADENOCARCINOMA
     Route: 048
     Dates: start: 201809, end: 2018
  7. BEVACIZUMAB. [Suspect]
     Active Substance: BEVACIZUMAB
     Indication: LUNG ADENOCARCINOMA
     Dosage: 15 ML/KG
     Route: 042
     Dates: start: 20180420
  8. CISPLATIN. [Concomitant]
     Active Substance: CISPLATIN
     Route: 041
     Dates: start: 20180509
  9. CISPLATIN. [Concomitant]
     Active Substance: CISPLATIN
     Route: 041
     Dates: start: 20180715
  10. APATINIB [Concomitant]
     Active Substance: APATINIB
     Indication: LUNG ADENOCARCINOMA
     Route: 048
     Dates: start: 201809, end: 2018
  11. BEVACIZUMAB. [Suspect]
     Active Substance: BEVACIZUMAB
     Dosage: 15 ML/KG
     Route: 042
     Dates: start: 20180509
  12. SHR-1210 (ANTI-PD-1 MONOCLONAL ANTIBODY) [Concomitant]
     Indication: LUNG ADENOCARCINOMA
     Route: 065
     Dates: start: 20180303
  13. DOCETAXEL. [Concomitant]
     Active Substance: DOCETAXEL
     Route: 041
     Dates: start: 20180530
  14. CISPLATIN. [Concomitant]
     Active Substance: CISPLATIN
     Route: 041
     Dates: start: 20180621
  15. CISPLATIN. [Concomitant]
     Active Substance: CISPLATIN
     Route: 041
     Dates: start: 20180829, end: 2018
  16. BEVACIZUMAB. [Suspect]
     Active Substance: BEVACIZUMAB
     Dosage: 15 ML/KG
     Route: 042
     Dates: start: 20180530
  17. CARBOPLATIN. [Concomitant]
     Active Substance: CARBOPLATIN
     Indication: LUNG ADENOCARCINOMA
     Route: 065
     Dates: start: 20180303
  18. CARBOPLATIN. [Concomitant]
     Active Substance: CARBOPLATIN
     Route: 065
     Dates: start: 20180326, end: 2018
  19. DOCETAXEL. [Concomitant]
     Active Substance: DOCETAXEL
     Indication: LUNG ADENOCARCINOMA
     Route: 041
     Dates: start: 20180420
  20. CISPLATIN. [Concomitant]
     Active Substance: CISPLATIN
     Route: 041
     Dates: start: 20180807
  21. BEVACIZUMAB. [Suspect]
     Active Substance: BEVACIZUMAB
     Dosage: 15 ML/KG
     Route: 042
     Dates: start: 20180621
  22. BEVACIZUMAB. [Suspect]
     Active Substance: BEVACIZUMAB
     Dosage: 15 ML/KG
     Route: 042
     Dates: start: 20180829, end: 2018
  23. SHR-1210 (ANTI-PD-1 MONOCLONAL ANTIBODY) [Concomitant]
     Route: 065
     Dates: start: 20180326, end: 2018
  24. DOCETAXEL. [Concomitant]
     Active Substance: DOCETAXEL
     Route: 041
     Dates: start: 20180807
  25. ANLOTINIB HYDROCHLORIDE [Concomitant]
     Indication: LUNG ADENOCARCINOMA
     Route: 048
     Dates: start: 20181119
  26. BEVACIZUMAB. [Suspect]
     Active Substance: BEVACIZUMAB
     Dosage: 15 ML/KG
     Route: 042
     Dates: start: 20180715
  27. PEMETREXED. [Concomitant]
     Active Substance: PEMETREXED
     Route: 065
     Dates: start: 20180326, end: 2018
  28. CISPLATIN. [Concomitant]
     Active Substance: CISPLATIN
     Indication: LUNG ADENOCARCINOMA
     Route: 041
     Dates: start: 20180420
  29. CISPLATIN. [Concomitant]
     Active Substance: CISPLATIN
     Route: 041
     Dates: start: 20180530
  30. DOCETAXEL. [Concomitant]
     Active Substance: DOCETAXEL
     Route: 041
     Dates: start: 20180509

REACTIONS (3)
  - Gastrointestinal toxicity [Unknown]
  - Bone marrow failure [Recovering/Resolving]
  - Diarrhoea [Unknown]
